FAERS Safety Report 8494799 (Version 2)
Quarter: 2013Q3

REPORT INFORMATION
  Report Type: Spontaneous
  Country: FR (occurrence: FR)
  Receive Date: 20120405
  Receipt Date: 20130712
  Transmission Date: 20140515
  Serious: Yes (Hospitalization, Other)
  Sender: FDA-Public Use
  Company Number: FR-AMGEN-FRASP2011067141

PATIENT
  Age: 55 Year
  Sex: Female

DRUGS (3)
  1. ENBREL [Suspect]
     Indication: PRODUCT USED FOR UNKNOWN INDICATION
     Dosage: 50 MG, WEEKLY
     Route: 058
     Dates: start: 200811, end: 20111019
  2. ARAVA [Suspect]
     Dosage: 20 MG, 1X/DAY
     Route: 048
     Dates: start: 20110622, end: 201111
  3. ARAVA [Suspect]
     Dosage: 20 MG, 1X/DAY
     Dates: start: 20120227

REACTIONS (3)
  - Psoriatic arthropathy [Recovered/Resolved]
  - Rheumatoid arthritis [Not Recovered/Not Resolved]
  - Pustular psoriasis [Recovering/Resolving]
